FAERS Safety Report 7287327-3 (Version None)
Quarter: 2011Q1

REPORT INFORMATION
  Report Type: 
  Country: None (occurrence: None)
  Receive Date: 20110207
  Receipt Date: 20110207
  Transmission Date: 20110831
  Serious: Yes (Life-Threatening, Disabling)
  Sender: FDA-Public Use
  Company Number: None

PATIENT
  Age: 64 Year
  Sex: Female
  Weight: 54 kg

DRUGS (2)
  1. HUMIRA [Suspect]
     Indication: RHEUMATOID ARTHRITIS
     Dosage: 40 MG EVERY TWO WEEK SUBCT
     Route: 058
     Dates: start: 20050101
  2. MOBIC [Suspect]
     Indication: RHEUMATOID ARTHRITIS
     Dosage: 7.5 MG 1 A DAY MOUTH
     Route: 048
     Dates: start: 20050101

REACTIONS (2)
  - HEPATITIS TOXIC [None]
  - ADVERSE EVENT [None]
